FAERS Safety Report 10743649 (Version 1)
Quarter: 2015Q1

REPORT INFORMATION
  Report Type: Spontaneous
  Country: IT (occurrence: IT)
  Receive Date: 20150128
  Receipt Date: 20150128
  Transmission Date: 20150721
  Serious: Yes (Other)
  Sender: FDA-Public Use
  Company Number: IT-CIPLA LTD.-2015IT00580

PATIENT
  Age: 53 Year
  Sex: Female

DRUGS (3)
  1. CETIRIZINE [Suspect]
     Active Substance: CETIRIZINE HYDROCHLORIDE
     Indication: URTICARIA
  2. CETIRIZINE [Suspect]
     Active Substance: CETIRIZINE HYDROCHLORIDE
     Indication: PRURITUS
     Dosage: 10 MG, PER DAY
  3. TETRABENAZINE [Suspect]
     Active Substance: TETRABENAZINE
     Indication: DYSKINESIA
     Dosage: 25 MG, PER DAY

REACTIONS (9)
  - Speech disorder [Unknown]
  - Oromandibular dystonia [Recovering/Resolving]
  - Weight decreased [Unknown]
  - Parkinsonism [Recovering/Resolving]
  - Dyskinesia [Recovering/Resolving]
  - Feeding disorder [Unknown]
  - Gait disturbance [Unknown]
  - Dysphagia [Unknown]
  - Bradykinesia [Unknown]
